FAERS Safety Report 22316156 (Version 2)
Quarter: 2024Q3

REPORT INFORMATION
  Report Type: Report from Study
  Country: US (occurrence: US)
  Receive Date: 20230512
  Receipt Date: 20240905
  Transmission Date: 20241017
  Serious: No
  Sender: NOVARTIS
  Company Number: US-002147023-NVSC2023US107428

PATIENT
  Sex: Male

DRUGS (1)
  1. ENTRESTO [Suspect]
     Active Substance: SACUBITRIL\VALSARTAN
     Indication: Product used for unknown indication
     Dosage: UNK
     Route: 065
     Dates: start: 20211120

REACTIONS (6)
  - Peripheral swelling [Unknown]
  - Swelling [Unknown]
  - Hypersensitivity [Unknown]
  - Cough [Unknown]
  - Nasal congestion [Unknown]
  - Fluid retention [Unknown]
